FAERS Safety Report 20040593 (Version 1)
Quarter: 2021Q4

REPORT INFORMATION
  Report Type: Spontaneous
  Country: US (occurrence: None)
  Receive Date: 20211107
  Receipt Date: 20211107
  Transmission Date: 20220303
  Serious: No
  Sender: FDA-Public Use
  Company Number: None

PATIENT
  Age: 33 Year
  Sex: Female
  Weight: 69.75 kg

DRUGS (4)
  1. DEXTROAMPHET SACCHARAT, AMPHET ASPARTATE, DEXTROAMPHET SULFATE AND AMP [Suspect]
     Active Substance: AMPHETAMINE ASPARTATE\AMPHETAMINE SULFATE\DEXTROAMPHETAMINE SACCHARATE\DEXTROAMPHETAMINE SULFATE
     Indication: Attention deficit hyperactivity disorder
     Dosage: OTHER QUANTITY : 1 CAPSULE(S);?
     Route: 048
     Dates: start: 20211101, end: 20211107
  2. HYDROXYZINE [Concomitant]
     Active Substance: HYDROXYZINE HYDROCHLORIDE
  3. VITAMIN D [Concomitant]
     Active Substance: VITAMIN D NOS
  4. VITAMIN B [Concomitant]
     Active Substance: VITAMIN B

REACTIONS (11)
  - Hypertension [None]
  - Heart rate increased [None]
  - Abdominal pain upper [None]
  - Sinus headache [None]
  - Myalgia [None]
  - Fatigue [None]
  - Sluggishness [None]
  - Sedation [None]
  - Peripheral coldness [None]
  - Irritability [None]
  - Illness [None]

NARRATIVE: CASE EVENT DATE: 20211103
